FAERS Safety Report 19959315 (Version 3)
Quarter: 2022Q1

REPORT INFORMATION
  Report Type: Spontaneous
  Country: FR (occurrence: FR)
  Receive Date: 20211015
  Receipt Date: 20220203
  Transmission Date: 20220424
  Serious: Yes (Hospitalization)
  Sender: FDA-Public Use
  Company Number: None

PATIENT
  Age: 66 Year
  Sex: Female

DRUGS (12)
  1. PANTOPRAZOLE [Suspect]
     Active Substance: PANTOPRAZOLE
     Dosage: 40 MG, 1X/DAY (QD)
     Route: 042
     Dates: start: 202109
  2. VANCOMYCIN [Suspect]
     Active Substance: VANCOMYCIN
     Indication: Acute endocarditis
     Dosage: UNK
     Route: 065
     Dates: start: 20210831, end: 20210910
  3. ACETAMINOPHEN [Suspect]
     Active Substance: ACETAMINOPHEN
     Dosage: 1 GRAM
     Route: 041
     Dates: start: 202109, end: 20210920
  4. AMOXICILLIN [Suspect]
     Active Substance: AMOXICILLIN
     Indication: Acute endocarditis
     Dosage: 2 GRAM, Q4HR
     Route: 042
     Dates: start: 20210902, end: 20210920
  5. RACECADOTRIL [Suspect]
     Active Substance: RACECADOTRIL
     Dosage: 100 MILLIGRAM, Q8HR
     Route: 048
     Dates: start: 202109
  6. HALOPERIDOL [Suspect]
     Active Substance: HALOPERIDOL
     Indication: Nausea
     Dosage: 5 GTT DROPS
     Route: 048
     Dates: start: 202109
  7. OXYCODONE [Suspect]
     Active Substance: OXYCODONE
     Dosage: 5 MILLIGRAM, Q12H
     Route: 048
     Dates: start: 202109
  8. PHLOROGLUCINOL [Suspect]
     Active Substance: PHLOROGLUCINOL
     Dosage: 80 MILLIGRAM
     Route: 042
     Dates: start: 202109
  9. CLAVULANIC ACID [Suspect]
     Active Substance: CLAVULANIC ACID
     Indication: Acute endocarditis
     Dosage: 200 MILLIGRAM, Q8HR
     Route: 042
     Dates: start: 20210902, end: 20210920
  10. METOCLOPRAMIDE [Suspect]
     Active Substance: METOCLOPRAMIDE
     Dosage: 10 MILLIGRAM
     Route: 042
     Dates: start: 202109
  11. MONTMORILLONITE [Suspect]
     Active Substance: MONTMORILLONITE
     Dosage: 3 GRAM, Q8HR
     Route: 048
     Dates: start: 202109
  12. OXYCODONE [Suspect]
     Active Substance: OXYCODONE
     Dosage: 5 MG, 2X/DAY
     Route: 048
     Dates: start: 202109

REACTIONS (1)
  - Hepatitis acute [Recovering/Resolving]

NARRATIVE: CASE EVENT DATE: 20210920
